FAERS Safety Report 23267627 (Version 1)
Quarter: 2023Q4

REPORT INFORMATION
  Report Type: Spontaneous
  Country: US (occurrence: None)
  Receive Date: 20231205
  Receipt Date: 20231205
  Transmission Date: 20240110
  Serious: Yes (Other)
  Sender: FDA-Public Use
  Company Number: None

PATIENT
  Age: 77 Year
  Sex: Male
  Weight: 77.4 kg

DRUGS (11)
  1. KEYTRUDA [Suspect]
     Active Substance: PEMBROLIZUMAB
     Indication: Neuroendocrine carcinoma of the skin
     Dates: start: 20230807
  2. KEYTRUDA [Suspect]
     Active Substance: PEMBROLIZUMAB
     Indication: Metastatic neoplasm
  3. Eztimbe [Concomitant]
  4. Prantoprazole [Concomitant]
  5. MONTELUKAST [Concomitant]
     Active Substance: MONTELUKAST SODIUM
  6. FAMOTIDINE [Concomitant]
     Active Substance: FAMOTIDINE
  7. TAMSULOSIN [Concomitant]
     Active Substance: TAMSULOSIN
  8. MYRBETRIQ [Concomitant]
     Active Substance: MIRABEGRON
  9. ENSURE ORIGINAL [Concomitant]
  10. MOTRIN [Concomitant]
     Active Substance: IBUPROFEN
  11. METAMUCIL [Concomitant]
     Active Substance: PLANTAGO SEED

REACTIONS (5)
  - Joint injury [None]
  - Arthralgia [None]
  - Joint effusion [None]
  - Therapy interrupted [None]
  - Chondrocalcinosis [None]

NARRATIVE: CASE EVENT DATE: 20230923
